FAERS Safety Report 5468855-X (Version None)
Quarter: 2007Q3

REPORT INFORMATION
  Report Type: 
  Country: None (occurrence: None)
  Receive Date: 20070926
  Receipt Date: 20070914
  Transmission Date: 20080115
  Serious: Yes (Other)
  Sender: FDA-Public Use
  Company Number: US-PFIZER INC-2007078188

PATIENT
  Sex: Male

DRUGS (4)
  1. XALATAN [Suspect]
  2. NORVASC [Concomitant]
  3. GLUCOPHAGE [Concomitant]
  4. INSULIN [Concomitant]

REACTIONS (2)
  - ARRHYTHMIA [None]
  - EXTRASYSTOLES [None]
